FAERS Safety Report 17436357 (Version 1)
Quarter: 2020Q1

REPORT INFORMATION
  Report Type: Spontaneous
  Country: US (occurrence: US)
  Receive Date: 20200219
  Receipt Date: 20200219
  Transmission Date: 20200409
  Serious: No
  Sender: FDA-Public Use
  Company Number: US-LANTHEUS-LMI-2019-00648

PATIENT
  Age: 26 Year
  Sex: Female

DRUGS (2)
  1. DEFINITY [Suspect]
     Active Substance: PERFLUTREN
     Indication: ECHOCARDIOGRAM
     Dosage: 2 MILLILITER, (1.3 ML DEFINITY PREPARED IN 8.7 ML PRESERVATIVE-FREE NORMAL SALINE)
     Route: 040
     Dates: start: 20191009, end: 20191009
  2. MARIJUANA [Concomitant]
     Active Substance: CANNABIS SATIVA SUBSP. INDICA TOP
     Indication: PRODUCT USED FOR UNKNOWN INDICATION
     Dosage: UNK, QD
     Route: 065

REACTIONS (7)
  - Heart rate increased [Recovered/Resolved]
  - Back pain [Recovered/Resolved]
  - Pain in extremity [Recovered/Resolved]
  - Dyspnoea [Recovered/Resolved]
  - Loss of control of legs [Recovered/Resolved]
  - Oxygen saturation decreased [Recovered/Resolved]
  - Hyperventilation [Recovered/Resolved]

NARRATIVE: CASE EVENT DATE: 20191009
